FAERS Safety Report 4338689-8 (Version None)
Quarter: 2004Q2

REPORT INFORMATION
  Report Type: 
  Country: None (occurrence: None)
  Receive Date: 20040409
  Receipt Date: 20040402
  Transmission Date: 20050107
  Serious: Yes (Hospitalization)
  Sender: FDA-Public Use
  Company Number: BE-JNJFOC-20040303863

PATIENT
  Age: 49 Year
  Sex: Male

DRUGS (3)
  1. CISAPRIDE (CISAPRIDE) TABLETS [Suspect]
     Indication: IMPAIRED GASTRIC EMPTYING
     Dosage: SEE IMAGE
     Route: 048
     Dates: start: 20030120
  2. CISAPRIDE (CISAPRIDE) TABLETS [Suspect]
     Indication: IMPAIRED GASTRIC EMPTYING
     Dosage: SEE IMAGE
     Route: 048
     Dates: start: 20030718
  3. CISAPRIDE (CISAPRIDE) TABLETS [Suspect]
     Indication: IMPAIRED GASTRIC EMPTYING
     Dosage: SEE IMAGE
     Route: 048
     Dates: start: 20031202

REACTIONS (2)
  - BRONCHITIS [None]
  - SUPERINFECTION [None]
